FAERS Safety Report 6775277-8 (Version None)
Quarter: 2010Q2

REPORT INFORMATION
  Report Type: 
  Country: None (occurrence: None)
  Receive Date: 20100615
  Receipt Date: 20100615
  Transmission Date: 20101027
  Serious: Yes (Other)
  Sender: FDA-Public Use
  Company Number: None

PATIENT
  Age: 86 Year
  Sex: Female
  Weight: 54.4316 kg

DRUGS (2)
  1. PLAVIX [Suspect]
     Dates: start: 20100413, end: 20100512
  2. PLAVIX [Suspect]
     Dates: start: 20100514, end: 20100614

REACTIONS (13)
  - ABDOMINAL DISCOMFORT [None]
  - APPETITE DISORDER [None]
  - BLOOD CREATININE INCREASED [None]
  - CONFUSIONAL STATE [None]
  - CONJUNCTIVITIS [None]
  - CONTUSION [None]
  - GENERAL PHYSICAL HEALTH DETERIORATION [None]
  - HEADACHE [None]
  - MUSCULAR WEAKNESS [None]
  - OCULAR ICTERUS [None]
  - RASH [None]
  - URINARY TRACT INFECTION [None]
  - WEIGHT DECREASED [None]
